FAERS Safety Report 5245132-3 (Version None)
Quarter: 2007Q1

REPORT INFORMATION
  Report Type: 
  Country: None (occurrence: None)
  Receive Date: 20070223
  Receipt Date: 20070213
  Transmission Date: 20070707
  Serious: Yes (Hospitalization)
  Sender: FDA-Public Use
  Company Number: PHEH2006US10269

PATIENT
  Age: 70 Year
  Sex: Female

DRUGS (5)
  1. TARKA [Concomitant]
     Dosage: 2/240 MG, QD
  2. NORCO [Concomitant]
     Dosage: 7.5/325 MG, TID
  3. ATIVAN [Concomitant]
     Dosage: 1 MG, TID
  4. IBUPROFEN [Concomitant]
     Dosage: 600 MG, TID
  5. LOTREL [Suspect]
     Indication: BLOOD PRESSURE ABNORMAL
     Dosage: UNK, UNK
     Route: 048
     Dates: start: 20060401

REACTIONS (5)
  - ABDOMINAL PAIN UPPER [None]
  - CHROMATOPSIA [None]
  - COLITIS [None]
  - RECTAL DISCHARGE [None]
  - VOMITING PROJECTILE [None]
